FAERS Safety Report 7037892 (Version 3)
Quarter: 2015Q2

REPORT INFORMATION
  Report Type: Spontaneous
  Country: US (occurrence: US)
  Receive Date: 20090630
  Receipt Date: 20150427
  Transmission Date: 20150821
  Serious: Yes (Hospitalization, Other)
  Sender: FDA-Public Use
  Company Number: US-AMGEN-QUU352752

PATIENT
  Age: 59 Year
  Sex: Female

DRUGS (1)
  1. ENBREL [Suspect]
     Active Substance: ETANERCEPT
     Indication: RHEUMATOID ARTHRITIS
     Dosage: 50 MG, QWK
     Route: 058

REACTIONS (21)
  - Peripheral swelling [Not Recovered/Not Resolved]
  - Tooth infection [Recovered/Resolved]
  - Chondropathy [Not Recovered/Not Resolved]
  - Oral infection [Not Recovered/Not Resolved]
  - Oedema peripheral [Not Recovered/Not Resolved]
  - Weight increased [Not Recovered/Not Resolved]
  - Poor peripheral circulation [Not Recovered/Not Resolved]
  - Joint swelling [Not Recovered/Not Resolved]
  - Therapeutic response decreased [Not Recovered/Not Resolved]
  - Endodontic procedure [Not Recovered/Not Resolved]
  - Upper limb fracture [Recovered/Resolved]
  - Meniscus injury [Recovered/Resolved]
  - Erythema [Not Recovered/Not Resolved]
  - Feeling abnormal [Recovered/Resolved]
  - Surgical failure [Recovered/Resolved]
  - Fall [Recovered/Resolved]
  - Rheumatoid arthritis [Recovered/Resolved]
  - Dental care [Not Recovered/Not Resolved]
  - Dental implantation [Recovered/Resolved]
  - Joint dislocation [Recovered/Resolved]
  - Tooth disorder [Recovered/Resolved]

NARRATIVE: CASE EVENT DATE: 2007
